FAERS Safety Report 7285683-3 (Version None)
Quarter: 2011Q1

REPORT INFORMATION
  Report Type: 
  Country: None (occurrence: None)
  Receive Date: 20110210
  Receipt Date: 20110203
  Transmission Date: 20110831
  Serious: Yes (Other)
  Sender: FDA-Public Use
  Company Number: B0698185A

PATIENT
  Age: 2 Month

DRUGS (1)
  1. VENTOLIN [Suspect]
     Dosage: .1ML PER DAY
     Route: 055

REACTIONS (1)
  - VENTRICULAR TACHYCARDIA [None]
